FAERS Safety Report 5187898-7 (Version None)
Quarter: 2006Q4

REPORT INFORMATION
  Report Type: 
  Country: None (occurrence: None)
  Receive Date: 20061221
  Receipt Date: 20061109
  Transmission Date: 20070319
  Serious: Yes (Other)
  Sender: FDA-Public Use
  Company Number: PHEH2006US14168

PATIENT
  Sex: Male

DRUGS (2)
  1. FORADIL [Suspect]
  2. SPIRIVA [Concomitant]

REACTIONS (4)
  - ATRIAL FIBRILLATION [None]
  - DEVICE MALFUNCTION [None]
  - INCORRECT ROUTE OF DRUG ADMINISTRATION [None]
  - TACHYCARDIA [None]
